FAERS Safety Report 9769327 (Version 1)
Quarter: 2013Q4

REPORT INFORMATION
  Report Type: Report from Study
  Country: US (occurrence: US)
  Receive Date: 20131218
  Receipt Date: 20131218
  Transmission Date: 20140711
  Serious: Yes (Other)
  Sender: FDA-Public Use
  Company Number: US-US-EMD SERONO, INC.-7257041

PATIENT
  Age: 57 Year
  Sex: Male

DRUGS (3)
  1. REBIF [Suspect]
     Indication: MULTIPLE SCLEROSIS
     Route: 058
     Dates: start: 20041129
  2. MULTIVITAMIN                       /00831701/ [Concomitant]
     Indication: ROUTINE HEALTH MAINTENANCE
  3. BABY ASPIRIN [Concomitant]
     Indication: CARDIAC DISORDER

REACTIONS (2)
  - Epilepsy [Recovered/Resolved]
  - Fall [Recovered/Resolved]
